FAERS Safety Report 13226832 (Version 3)
Quarter: 2017Q2

REPORT INFORMATION
  Report Type: Spontaneous
  Country: US (occurrence: US)
  Receive Date: 20170213
  Receipt Date: 20170518
  Transmission Date: 20170830
  Serious: Yes (Hospitalization)
  Sender: FDA-Public Use
  Company Number: US-LUNDBECK-DKLU2025801

PATIENT
  Age: 78 Year
  Sex: Male

DRUGS (2)
  1. NORTHERA [Suspect]
     Active Substance: DROXIDOPA
     Route: 065
  2. NORTHERA [Suspect]
     Active Substance: DROXIDOPA
     Indication: PRODUCT USED FOR UNKNOWN INDICATION
     Dosage: TITRATION B, COMPLETED
     Route: 065
     Dates: start: 20170119

REACTIONS (4)
  - Fall [Unknown]
  - Gait disturbance [Unknown]
  - Drug ineffective [Unknown]
  - Hip fracture [Unknown]

NARRATIVE: CASE EVENT DATE: 20170119
